FAERS Safety Report 16304938 (Version 4)
Quarter: 2019Q2

REPORT INFORMATION
  Report Type: Spontaneous
  Country: GB (occurrence: GB)
  Receive Date: 20190513
  Receipt Date: 20190522
  Transmission Date: 20190711
  Serious: Yes (Hospitalization, Other)
  Sender: FDA-Public Use
  Company Number: GB-PFIZER INC-2019197736

PATIENT
  Age: 30 Year
  Sex: Female

DRUGS (3)
  1. PREDNISOLONE. [Suspect]
     Active Substance: PREDNISOLONE
     Indication: NECROTISING MYOSITIS
     Dosage: 30 MG, DAILY
     Route: 048
  2. RITUXIMAB. [Suspect]
     Active Substance: RITUXIMAB
     Indication: NECROTISING MYOSITIS
     Dosage: 1 G, EVERY 6 MONTHS
  3. METHYLPREDNISOLONE. [Suspect]
     Active Substance: METHYLPREDNISOLONE
     Indication: NECROTISING MYOSITIS
     Dosage: 1 G, DAILY (FOR 3 DAYS - AT 16 WEEK OF GESTATION)
     Route: 042

REACTIONS (5)
  - Haemorrhage in pregnancy [Unknown]
  - Placenta praevia [Unknown]
  - Transverse presentation [Unknown]
  - Premature delivery [Unknown]
  - Placental disorder [Unknown]
